FAERS Safety Report 4590002-7 (Version None)
Quarter: 2005Q1

REPORT INFORMATION
  Report Type: 
  Country: None (occurrence: None)
  Receive Date: 20050218
  Receipt Date: 20050218
  Transmission Date: 20050727
  Serious: No
  Sender: FDA-Public Use
  Company Number: None

PATIENT
  Age: 70 Year
  Sex: Female
  Weight: 53.5244 kg

DRUGS (1)
  1. LEVAQUIN [Suspect]
     Indication: CHRONIC OBSTRUCTIVE AIRWAYS DISEASE EXACERBATED
     Dosage: 500MG  DAILY ORAL
     Route: 048
     Dates: start: 20050119, end: 20050126

REACTIONS (2)
  - CELLULITIS [None]
  - TENDONITIS [None]
